FAERS Safety Report 9929535 (Version 1)
Quarter: 2014Q1

REPORT INFORMATION
  Report Type: Spontaneous
  Country: DE (occurrence: DE)
  Receive Date: 20140227
  Receipt Date: 20140227
  Transmission Date: 20141002
  Serious: Yes (Other)
  Sender: FDA-Public Use
  Company Number: DE-009507513-1402DEU002373

PATIENT
  Age: 76 Year
  Sex: Male
  Weight: 82 kg

DRUGS (4)
  1. NASONEX [Suspect]
     Indication: ALLERGIC SINUSITIS
     Dosage: DAILY DOSE: 2X2 -} 1X1
     Dates: start: 20140124, end: 20140126
  2. VALSARTAN [Concomitant]
     Indication: HYPERTENSION
     Dosage: 1 DF EVERY DAY, QD
  3. L-THYROXIN [Concomitant]
     Dosage: 1 DF EVERY DAY, QD
  4. GABAPENTIN [Concomitant]

REACTIONS (3)
  - Hypertensive crisis [Not Recovered/Not Resolved]
  - Blood pressure increased [Not Recovered/Not Resolved]
  - Vertigo [Not Recovered/Not Resolved]
